FAERS Safety Report 8765606 (Version 1)
Quarter: 2012Q4

REPORT INFORMATION
  Report Type: 
  Country: ZA (occurrence: ZA)
  Receive Date: 20120903
  Receipt Date: 20120903
  Transmission Date: 20130627
  Serious: Yes (Other)
  Sender: FDA-Public Use
  Company Number: PHHY2012ZA075438

PATIENT
  Age: 12 Year
  Sex: Male

DRUGS (2)
  1. GLEEVEC [Suspect]
     Dosage: 300 mg, UNK
  2. GLEEVEC [Suspect]
     Dosage: 400 mg, UNK

REACTIONS (2)
  - Hypothyroidism [Unknown]
  - Weight increased [Unknown]
